FAERS Safety Report 9008668 (Version 1)
Quarter: 2013Q1

REPORT INFORMATION
  Report Type: Spontaneous
  Country: US (occurrence: US)
  Receive Date: 20130111
  Receipt Date: 20130111
  Transmission Date: 20140127
  Serious: Yes (Other)
  Sender: FDA-Public Use
  Company Number: US-PFIZER INC-2013010877

PATIENT
  Age: 52 Year
  Sex: Female

DRUGS (4)
  1. NORVASC [Suspect]
     Dosage: 10 MG, 1X/DAY
  2. BENAZEPRIL [Concomitant]
     Dosage: UNK
  3. TRAMADOL [Concomitant]
     Dosage: UNK
  4. CARVEDILOL [Concomitant]
     Dosage: UNK

REACTIONS (2)
  - Myocardial infarction [Unknown]
  - Arthropathy [Unknown]
